FAERS Safety Report 18128276 (Version 5)
Quarter: 2021Q3

REPORT INFORMATION
  Report Type: Report from Study
  Country: CO (occurrence: CO)
  Receive Date: 20200810
  Receipt Date: 20210715
  Transmission Date: 20211014
  Serious: Yes (Other)
  Sender: FDA-Public Use
  Company Number: CO-AMGEN-COLSL2020111797

PATIENT
  Age: 58 Year
  Sex: Male

DRUGS (2)
  1. ARTIFICIAL TEARS [HYPROMELLOSE] [Concomitant]
     Dosage: UNK (1 DROP EVERY 12 HOURS IN EACH EYE, REPEAT IN CASE OF FEELING DRY EYES)
  2. VECTIBIX [Suspect]
     Active Substance: PANITUMUMAB
     Indication: COLORECTAL CANCER METASTATIC
     Dosage: 440 MILLIGRAM, Q2WK
     Route: 042
     Dates: start: 20200527

REACTIONS (9)
  - Erythema [Recovering/Resolving]
  - Inflammation [Recovering/Resolving]
  - Skin reaction [Not Recovered/Not Resolved]
  - Skin laceration [Recovering/Resolving]
  - Dysgeusia [Recovering/Resolving]
  - Decreased appetite [Recovering/Resolving]
  - Weight decreased [Recovering/Resolving]
  - Palpitations [Recovering/Resolving]
  - Rash pruritic [Not Recovered/Not Resolved]

NARRATIVE: CASE EVENT DATE: 2020
